FAERS Safety Report 14752359 (Version 2)
Quarter: 2018Q2

REPORT INFORMATION
  Report Type: Spontaneous
  Country: US (occurrence: US)
  Receive Date: 20180412
  Receipt Date: 20180422
  Transmission Date: 20180711
  Serious: Yes (Other)
  Sender: FDA-Public Use
  Company Number: US-APOTEX-2018AP010284

PATIENT
  Age: 4 Year
  Sex: Male

DRUGS (1)
  1. MEGESTROL ACETATE ORAL SUSPENSION USP [Suspect]
     Active Substance: MEGESTROL ACETATE
     Indication: WEIGHT GAIN POOR
     Dosage: 4 MG, PER DAY
     Route: 065

REACTIONS (3)
  - Adrenal insufficiency [Recovered/Resolved]
  - Cushingoid [Recovered/Resolved]
  - Weight increased [Unknown]
